FAERS Safety Report 9478387 (Version 2)
Quarter: 2013Q3

REPORT INFORMATION
  Report Type: Spontaneous
  Country: US (occurrence: None)
  Receive Date: 20130822
  Receipt Date: 20130911
  Transmission Date: 20140515
  Serious: Yes (Hospitalization)
  Sender: FDA-Public Use
  Company Number: 2013US002290

PATIENT
  Age: 59 Year
  Sex: Female
  Weight: 59 kg

DRUGS (13)
  1. ICLUSIG [Suspect]
     Indication: CHRONIC MYELOID LEUKAEMIA
     Route: 048
     Dates: start: 20130118, end: 20130805
  2. THYROXINE (LEVOTHYROXINE SODIUM) [Concomitant]
  3. ALLOPURINOL )ALLOPURINOL) [Concomitant]
  4. DILTIAZEM [Concomitant]
  5. VITAMIN D (VITAMIN D) [Concomitant]
  6. ASA (ASA) [Concomitant]
  7. SPIRIVIA (TIOTROPIUM BROMIDE) [Suspect]
  8. COLCHICINE (COLCHCINE) [Concomitant]
  9. PREDNISONE  (PREDNISONE) [Concomitant]
  10. ACYCLOVIR (ACYCLOVIR) [Concomitant]
  11. POTASSIUM (POTASSIUM) [Concomitant]
  12. ADVAIR (FLTICASONE PROPIONATE, SALMETROL XINAFOATE) INHALER [Concomitant]
  13. PERCOCET [Concomitant]

REACTIONS (9)
  - Dehydration [None]
  - Diarrhoea [None]
  - Renal failure acute [None]
  - Renal failure acute [None]
  - Colitis [None]
  - Bacteriuria [None]
  - Febrile neutropenia [None]
  - Nausea [None]
  - Lethargy [None]
